FAERS Safety Report 6298247-5 (Version None)
Quarter: 2009Q3

REPORT INFORMATION
  Report Type: 
  Country: None (occurrence: None)
  Receive Date: 20090805
  Receipt Date: 20090731
  Transmission Date: 20100115
  Serious: Yes (Other)
  Sender: FDA-Public Use
  Company Number: US-PFIZER INC-2009249304

PATIENT
  Sex: Male

DRUGS (1)
  1. GEODON [Suspect]
     Dates: start: 20090701

REACTIONS (1)
  - SUICIDAL IDEATION [None]
